FAERS Safety Report 18108280 (Version 1)
Quarter: 2020Q3

REPORT INFORMATION
  Report Type: Spontaneous
  Country: US (occurrence: US)
  Receive Date: 20200804
  Receipt Date: 20200804
  Transmission Date: 20201103
  Serious: Yes (Hospitalization)
  Sender: FDA-Public Use
  Company Number: US-MYLANLABS-2020M1069100

PATIENT
  Age: 39 Year
  Sex: Male

DRUGS (2)
  1. PACLITAXEL. [Concomitant]
     Active Substance: PACLITAXEL
     Indication: PANCREATIC CARCINOMA METASTATIC
     Dosage: 125 MILLIGRAM/SQ. METER, ON DAYS 1, 8, AND 15 OF A 28?DAY CYCLE
     Route: 065
  2. GEMCITABINE. [Suspect]
     Active Substance: GEMCITABINE
     Indication: PANCREATIC CARCINOMA METASTATIC
     Dosage: 1000 MILLIGRAM/SQ. METER(ON DAY 1, 8 + 15 OF 28 DAY CYCLE
     Route: 065

REACTIONS (7)
  - Cytopenia [Unknown]
  - Blood pressure increased [Unknown]
  - Retinal haemorrhage [Unknown]
  - Renal impairment [Unknown]
  - Thrombotic microangiopathy [Recovered/Resolved]
  - Brain stem ischaemia [Unknown]
  - Retinal oedema [Unknown]
